FAERS Safety Report 4318790-5 (Version None)
Quarter: 2004Q1

REPORT INFORMATION
  Report Type: 
  Country: None (occurrence: None)
  Receive Date: 20040318
  Receipt Date: 20040223
  Transmission Date: 20041129
  Serious: Yes (Hospitalization)
  Sender: FDA-Public Use
  Company Number: FR-GLAXOSMITHKLINE-B0324205A

PATIENT
  Age: 40 Year
  Sex: Female

DRUGS (12)
  1. AUGMENTIN [Suspect]
     Route: 065
     Dates: start: 20040121, end: 20040121
  2. BIPROFENID [Suspect]
     Dosage: 2UNIT PER DAY
     Route: 048
     Dates: start: 20040107, end: 20040120
  3. MOPRAL [Suspect]
     Dosage: 1UNIT PER DAY
     Route: 048
     Dates: start: 20040107, end: 20040120
  4. TARGOCID [Suspect]
     Dosage: 400MG SEE DOSAGE TEXT
     Route: 042
     Dates: start: 20040115
  5. GENTALLINE [Suspect]
     Dosage: 40MG SEE DOSAGE TEXT
     Route: 042
     Dates: start: 20040115
  6. BACTRIM DS [Suspect]
     Dosage: 2UNIT PER DAY
     Route: 048
     Dates: start: 20040115, end: 20040120
  7. DRIPTANE [Concomitant]
     Route: 065
  8. IMOVANE [Concomitant]
     Route: 065
  9. ATARAX [Concomitant]
     Route: 065
  10. MORPHINE [Concomitant]
     Route: 065
  11. TAGAMET [Concomitant]
     Dosage: 2UNIT UNKNOWN
     Route: 065
  12. PRIMPERAN INJ [Concomitant]

REACTIONS (9)
  - BLISTER [None]
  - DERMATITIS BULLOUS [None]
  - LUNG DISORDER [None]
  - ORAL MUCOSAL DISORDER [None]
  - PRURITUS [None]
  - PURPURA [None]
  - RASH ERYTHEMATOUS [None]
  - SKIN DISORDER [None]
  - TOXIC EPIDERMAL NECROLYSIS [None]
